FAERS Safety Report 19099583 (Version 1)
Quarter: 2021Q2

REPORT INFORMATION
  Report Type: Other
  Country: FR (occurrence: FR)
  Receive Date: 20210406
  Receipt Date: 20210406
  Transmission Date: 20210717
  Serious: Yes (Hospitalization)
  Sender: FDA-Public Use
  Company Number: FR-VALIDUS PHARMACEUTICALS LLC-FR-2021VAL000659

PATIENT
  Age: 89 Year
  Sex: Female
  Weight: 54 kg

DRUGS (14)
  1. ALPRAZOLAM. [Suspect]
     Active Substance: ALPRAZOLAM
     Indication: ANXIETY
     Dosage: 1 MG, QD, 1?0.5?1 (0.25 MG)
     Route: 048
     Dates: start: 2016
  2. CICLOPIROX OLAMINE. [Suspect]
     Active Substance: CICLOPIROX OLAMINE
     Indication: DERMATOPHYTOSIS
     Dosage: 1 DF, QD, 1X/J ON NAILS
     Route: 003
     Dates: start: 201808, end: 20181120
  3. CYANOCOBALAMIN. [Suspect]
     Active Substance: CYANOCOBALAMIN
     Indication: HYPOVITAMINOSIS
     Dosage: 1 DF, QW, 1?0?0
     Route: 048
     Dates: start: 201808, end: 20181120
  4. MODOPAR [Suspect]
     Active Substance: BENSERAZIDE HYDROCHLORIDE\LEVODOPA
     Indication: PARKINSON^S DISEASE
     Dosage: 2 DF, QD, 1?0?1
     Route: 048
     Dates: start: 2016, end: 20181122
  5. TRAMADOL HYDROCHLORIDE. [Suspect]
     Active Substance: TRAMADOL HYDROCHLORIDE
     Indication: PAIN
     Dosage: 5 GTT DROPS, QD
     Route: 048
     Dates: start: 201808
  6. DOLIPRANE [Suspect]
     Active Substance: ACETAMINOPHEN
     Indication: PAIN
     Dosage: 4 G, QD, 2?2?2?2
     Route: 048
     Dates: start: 2016
  7. LEVOTHYROXINE SODIUM. [Suspect]
     Active Substance: LEVOTHYROXINE SODIUM
     Indication: HYPOTHYROIDISM
     Dosage: 50 ?G, QD, 1?0?0
     Route: 048
     Dates: start: 2016
  8. ANAFRANIL [Suspect]
     Active Substance: CLOMIPRAMINE HYDROCHLORIDE
     Indication: DEPRESSION
     Dosage: 75 MG, QD, 1?0?0
     Route: 048
     Dates: start: 2016
  9. BISOPROLOL HEMIFUMARATE [Suspect]
     Active Substance: BISOPROLOL FUMARATE
     Indication: CARDIAC FAILURE
     Dosage: 2.5 MG, QD, 1?0?0
     Route: 048
     Dates: start: 2016
  10. FUROSEMIDE. [Suspect]
     Active Substance: FUROSEMIDE
     Indication: HYPERTENSION
     Dosage: 40 MG, QD, 1?0?0
     Route: 048
     Dates: start: 2016
  11. LYSANXIA [Suspect]
     Active Substance: PRAZEPAM
     Indication: ANXIETY
     Dosage: 10 GTT, QD 5?0?5 (DROPS) SB
     Route: 048
     Dates: start: 201808, end: 20181120
  12. STAGID [Suspect]
     Active Substance: METFORMIN PAMOATE
     Indication: TYPE 2 DIABETES MELLITUS
     Dosage: 2100 MG, QD, 1?1?1
     Route: 048
     Dates: start: 201808
  13. SULFARLEM [Suspect]
     Active Substance: ANETHOLTRITHION
     Indication: APTYALISM
     Dosage: 150 MG, QD, 2?2?2
     Route: 048
     Dates: start: 201808
  14. LERCANIDIPINE HYDROCHLORIDE [Suspect]
     Active Substance: LERCANIDIPINE HYDROCHLORIDE
     Indication: HYPERTENSION
     Dosage: 10 MG, QD, 0?0?1
     Route: 048
     Dates: start: 2016

REACTIONS (2)
  - General physical health deterioration [Not Recovered/Not Resolved]
  - Fall [Unknown]

NARRATIVE: CASE EVENT DATE: 20181107
